FAERS Safety Report 5845868-7 (Version None)
Quarter: 2008Q3

REPORT INFORMATION
  Report Type: 
  Country: None (occurrence: None)
  Receive Date: 20080814
  Receipt Date: 20080806
  Transmission Date: 20090109
  Serious: No
  Sender: FDA-Public Use
  Company Number: US-BOEHRINGER INGELHEIM GMBH, GERMANY-2008-BP-08148BP

PATIENT
  Age: 75 Year
  Sex: Female

DRUGS (6)
  1. CATAPRES [Suspect]
     Indication: HYPERTENSION
     Route: 048
     Dates: start: 20080516, end: 20080613
  2. TENORMIN [Concomitant]
     Indication: HYPERTENSION
  3. DIAZIDE [Concomitant]
     Indication: HYPERTENSION
  4. PAXIL [Concomitant]
  5. BENICAR [Concomitant]
  6. LORAZEPAM [Concomitant]

REACTIONS (10)
  - COUGH [None]
  - DRY EYE [None]
  - DRY MOUTH [None]
  - DRY SKIN [None]
  - DRY THROAT [None]
  - PRURITUS GENERALISED [None]
  - SINUS DISORDER [None]
  - SKIN EXFOLIATION [None]
  - SOMNOLENCE [None]
  - THIRST [None]
